FAERS Safety Report 5069960-2 (Version None)
Quarter: 2006Q3

REPORT INFORMATION
  Report Type: 
  Country: None (occurrence: None)
  Receive Date: 20060731
  Receipt Date: 20060724
  Transmission Date: 20061208
  Serious: Yes (Hospitalization, Other)
  Sender: FDA-Public Use
  Company Number: HQWYE431719JAN06

PATIENT
  Age: 15 Year
  Sex: Male

DRUGS (5)
  1. RAPAMUNE [Suspect]
     Indication: PROPHYLAXIS AGAINST TRANSPLANT REJECTION
     Dosage: 8 MG 1X PER 1 DAY, ORAL
     Route: 048
     Dates: start: 20050915
  2. BACTRIM [Concomitant]
  3. NYSTATIN [Concomitant]
  4. ACYCLOVIR [Concomitant]
  5. FAMOTIDINE [Concomitant]

REACTIONS (1)
  - KIDNEY TRANSPLANT REJECTION [None]
